FAERS Safety Report 5394803-7 (Version None)
Quarter: 2007Q3

REPORT INFORMATION
  Report Type: 
  Country: None (occurrence: None)
  Receive Date: 20070723
  Receipt Date: 20070621
  Transmission Date: 20080115
  Serious: Yes (Other)
  Sender: FDA-Public Use
  Company Number: CH-PFIZER INC-2007059175

PATIENT
  Sex: Female

DRUGS (2)
  1. LYRICA [Suspect]
     Dosage: DAILY DOSE:225MG
     Route: 048
  2. DAFALGAN [Concomitant]

REACTIONS (4)
  - GAMMA-GLUTAMYLTRANSFERASE INCREASED [None]
  - MOOD SWINGS [None]
  - NIGHTMARE [None]
  - PSYCHOTIC DISORDER [None]
